FAERS Safety Report 7943589-8 (Version None)
Quarter: 2011Q4

REPORT INFORMATION
  Report Type: 
  Country: None (occurrence: None)
  Receive Date: 20111128
  Receipt Date: 20111122
  Transmission Date: 20120403
  Serious: Yes (Hospitalization, Other)
  Sender: FDA-Public Use
  Company Number: DE-ELI_LILLY_AND_COMPANY-DE201111006597

PATIENT
  Age: 79 Year
  Sex: Female

DRUGS (3)
  1. NOVALGIN [Concomitant]
     Dosage: 40 DF, EVERY 4 HRS
  2. MORPHINE [Concomitant]
     Dosage: 16 MG, QD
  3. FORTEO [Suspect]
     Indication: OSTEOPOROSIS
     Dosage: UNK, QD
     Route: 058
     Dates: start: 20101210

REACTIONS (1)
  - HIP FRACTURE [None]
